FAERS Safety Report 23294551 (Version 1)
Quarter: 2023Q4

REPORT INFORMATION
  Report Type: Spontaneous
  Country: US (occurrence: US)
  Receive Date: 20231213
  Receipt Date: 20231213
  Transmission Date: 20240109
  Serious: No
  Sender: FDA-Public Use
  Company Number: US-BRISTOL-MYERS SQUIBB COMPANY-2023-174426

PATIENT
  Age: 66 Year
  Sex: Male
  Weight: 53.52 kg

DRUGS (1)
  1. LENALIDOMIDE [Suspect]
     Active Substance: LENALIDOMIDE
     Indication: Plasma cell myeloma
     Dosage: FREQUENCY-DAILY ON DAYS 1-14 OF 28 DAY CYCLE
     Route: 048
     Dates: start: 20221028

REACTIONS (2)
  - SARS-CoV-2 test positive [Recovering/Resolving]
  - Off label use [Unknown]
